FAERS Safety Report 8207058-2 (Version None)
Quarter: 2012Q1

REPORT INFORMATION
  Report Type: 
  Country: None (occurrence: None)
  Receive Date: 20120314
  Receipt Date: 20120305
  Transmission Date: 20120608
  Serious: Yes (Hospitalization)
  Sender: FDA-Public Use
  Company Number: US-BAYER-2012-019865

PATIENT
  Age: 28 Year
  Sex: Female
  Weight: 75.057 kg

DRUGS (23)
  1. CLONAZEPAM [Concomitant]
     Dosage: 0.5 MG, UNK
  2. AMBIEN CR [Concomitant]
     Dosage: 12.5 MG, UNK
  3. VITAMIN TAB [Concomitant]
     Dosage: UNK
     Dates: start: 20100204
  4. ANTIFUNGALS [Concomitant]
     Indication: CANDIDIASIS
  5. BUPROPION HCL [Concomitant]
     Dosage: 150 MG, UNK
     Dates: start: 20091215, end: 20100109
  6. SINGULAIR [Concomitant]
  7. METHYLPREDNISOLONE [Concomitant]
     Dosage: 4 MG, UNK
  8. ZOLPIDEM TARTRATE [Concomitant]
     Dosage: 10 MG, UNK
  9. VITAMIN B COMPLEX [B3,B6,B2,B1 HCL] [Concomitant]
     Dosage: UNK
     Dates: start: 20100204
  10. BIAXIN [Concomitant]
  11. YAZ [Suspect]
     Dosage: UNK
     Dates: end: 20100201
  12. BENZONATATE [Concomitant]
     Dosage: 200 MG, UNK
  13. NEXIUM [Concomitant]
  14. PROMETHAZINE [Concomitant]
     Dosage: 25 MG, UNK
  15. GUAIFENESIN [Concomitant]
     Dosage: UNK
     Dates: start: 20100204
  16. PULMICORT [Concomitant]
  17. ONDANSETRON [Concomitant]
     Dosage: 8 MG, UNK
  18. IMITREX [Concomitant]
     Dosage: 100 MG, UNK
  19. METOPROLOL SUCCINATE [Concomitant]
  20. CYMBALTA [Concomitant]
  21. TOPIRAMATE [Concomitant]
     Dosage: 25 MG, UNK
  22. PRISTIQ [Concomitant]
     Dosage: 50 MG, UNK
  23. POTASSIUM [Concomitant]

REACTIONS (3)
  - PULMONARY EMBOLISM [None]
  - DEEP VEIN THROMBOSIS [None]
  - PAIN [None]
